FAERS Safety Report 9554328 (Version 1)
Quarter: 2013Q3

REPORT INFORMATION
  Report Type: Spontaneous
  Country: GB (occurrence: None)
  Receive Date: 20130726
  Receipt Date: 20130726
  Transmission Date: 20140515
  Serious: Yes (Other)
  Sender: FDA-Public Use
  Company Number: E2B_00000974

PATIENT
  Age: 21 Year
  Sex: Female

DRUGS (4)
  1. QUETIAPINE [Suspect]
     Indication: MANIA
     Route: 048
     Dates: start: 20130305, end: 20130318
  2. OLANZAPINE [Concomitant]
  3. LORAZEPAM [Concomitant]
  4. ZOPICLONE  (ZOPICLONE) [Concomitant]

REACTIONS (1)
  - Electrocardiogram QT prolonged [None]
